FAERS Safety Report 5256505-7 (Version None)
Quarter: 2007Q1

REPORT INFORMATION
  Report Type: 
  Country: None (occurrence: None)
  Receive Date: 20061204
  Receipt Date: 20060809
  Transmission Date: 20070707
  Serious: No
  Sender: FDA-Public Use
  Company Number: 2006-BP-09305BP

PATIENT
  Sex: Male

DRUGS (12)
  1. SPIRIVA [Suspect]
     Indication: CHRONIC OBSTRUCTIVE PULMONARY DISEASE
     Dosage: 18 MCG (18 MCG, 1 IN 1 D), IH
     Route: 055
     Dates: start: 20060301
  2. ALTACE [Concomitant]
  3. ASPIRIN [Concomitant]
  4. AVAPRO [Concomitant]
  5. COUMADIN [Concomitant]
  6. COREG [Concomitant]
  7. FLOMAX (MORNIFLUMATE) [Concomitant]
  8. FUROSEMIDE [Concomitant]
  9. ISOSORBIDE (ISOSORBIDE) [Concomitant]
  10. NIASPAN [Concomitant]
  11. VITORIN (ALL OTHER THERAPEUTIC PRODUCTS) [Concomitant]
  12. NEXIUM [Concomitant]

REACTIONS (1)
  - HYPOTENSION [None]
